FAERS Safety Report 10185780 (Version 1)
Quarter: 2014Q2

REPORT INFORMATION
  Report Type: Report from Study
  Country: CN (occurrence: CN)
  Receive Date: 20140521
  Receipt Date: 20140521
  Transmission Date: 20141212
  Serious: Yes (Death, Other)
  Sender: FDA-Public Use
  Company Number: CN-ASTELLAS-2014JP005848

PATIENT
  Sex: 0

DRUGS (4)
  1. TACROLIMUS [Suspect]
     Indication: ACUTE GRAFT VERSUS HOST DISEASE
     Route: 065
  2. METHYLPREDNISOLONE [Concomitant]
     Indication: ACUTE GRAFT VERSUS HOST DISEASE
     Dosage: AT HIGH DOSE
     Route: 065
  3. CYCLOSPORINE [Concomitant]
     Indication: PROPHYLAXIS AGAINST GRAFT VERSUS HOST DISEASE
     Route: 065
  4. METHOTREXATE [Concomitant]
     Indication: PROPHYLAXIS AGAINST GRAFT VERSUS HOST DISEASE
     Route: 065

REACTIONS (2)
  - Acute graft versus host disease [Fatal]
  - Drug ineffective [Unknown]
